FAERS Safety Report 11429202 (Version 1)
Quarter: 2015Q3

REPORT INFORMATION
  Report Type: Spontaneous
  Country: US (occurrence: None)
  Receive Date: 20150827
  Receipt Date: 20150827
  Transmission Date: 20151125
  Serious: Yes (Life-Threatening, Hospitalization)
  Sender: FDA-Public Use
  Company Number: None

PATIENT
  Age: 35 Year
  Sex: Female
  Weight: 72 kg

DRUGS (10)
  1. LANTUS SOLOSTAR [Concomitant]
     Active Substance: INSULIN GLARGINE
  2. METFORMIN (FORTAMET) [Concomitant]
  3. B-D UP III MINI PEN NEEDLES [Concomitant]
  4. LIPITOR [Concomitant]
     Active Substance: ATORVASTATIN CALCIUM
  5. INVOKANA [Concomitant]
     Active Substance: CANAGLIFLOZIN
  6. NOVOLOG [Concomitant]
     Active Substance: INSULIN ASPART
  7. INVOKANA [Suspect]
     Active Substance: CANAGLIFLOZIN
     Indication: DIABETES MELLITUS
     Dosage: 1 PILL
     Route: 048
  8. NUVARING [Concomitant]
     Active Substance: ETHINYL ESTRADIOL\ETONOGESTREL
  9. VICTOZA [Concomitant]
     Active Substance: LIRAGLUTIDE
  10. ONE TOUCH ULTRA TEST TEST STRIP [Concomitant]

REACTIONS (3)
  - Diabetic ketoacidosis [None]
  - Abdominal pain [None]
  - Ketoacidosis [None]

NARRATIVE: CASE EVENT DATE: 20150826
